FAERS Safety Report 7546738-9 (Version None)
Quarter: 2011Q2

REPORT INFORMATION
  Report Type: 
  Country: None (occurrence: None)
  Receive Date: 20110614
  Receipt Date: 20110606
  Transmission Date: 20111010
  Serious: Yes (Hospitalization)
  Sender: FDA-Public Use
  Company Number: A0931218A

PATIENT
  Age: 94 Year
  Sex: Male

DRUGS (1)
  1. MELPHALAN HYDROCHLORIDE [Suspect]
     Indication: MULTIPLE MYELOMA
     Dosage: 12MG PER DAY
     Route: 048
     Dates: start: 20110208

REACTIONS (3)
  - CHILLS [None]
  - PNEUMONIA [None]
  - RESPIRATORY DISTRESS [None]
